FAERS Safety Report 5144995-X (Version None)
Quarter: 2006Q4

REPORT INFORMATION
  Report Type: 
  Country: None (occurrence: None)
  Receive Date: 20061031
  Receipt Date: 20061018
  Transmission Date: 20070319
  Serious: Yes (Death, Other)
  Sender: FDA-Public Use
  Company Number: FABR-11248

PATIENT
  Age: 38 Year
  Sex: Female
  Weight: 49.8957 kg

DRUGS (10)
  1. FABRAZYME [Suspect]
     Indication: FABRY'S DISEASE
     Dosage: 50 MG Q2WKS IV
     Route: 042
     Dates: start: 20051129, end: 20060608
  2. FABRAZYME [Suspect]
  3. FABRAZYME [Suspect]
     Indication: FABRY'S DISEASE
     Dosage: 50 MG Q3WKS IV
     Route: 042
     Dates: start: 20051028
  4. FABRAZYME [Suspect]
     Indication: FABRY'S DISEASE
     Dosage: 50 MG Q2WKS IV
     Route: 042
     Dates: start: 20040816, end: 20050913
  5. CYTOXAN [Suspect]
     Indication: BREAST CANCER METASTATIC
     Dates: start: 20051104
  6. ADRIAMYCIN PFS [Suspect]
     Indication: BREAST CANCER METASTATIC
     Dosage: UNK
     Dates: start: 20051104
  7. EFFEXOR [Concomitant]
  8. ORAL CONTRACEPTIVES [Concomitant]
  9. CYTOXAN [Concomitant]
  10. ADRIAMYCIN PFS [Concomitant]

REACTIONS (6)
  - BREAST CANCER FEMALE [None]
  - BREAST CANCER METASTATIC [None]
  - INFUSION RELATED REACTION [None]
  - LYMPHADENOPATHY [None]
  - METASTASES TO LYMPH NODES [None]
  - NAUSEA [None]
